FAERS Safety Report 11544723 (Version 1)
Quarter: 2015Q3

REPORT INFORMATION
  Report Type: Spontaneous
  Country: AR (occurrence: AR)
  Receive Date: 20150924
  Receipt Date: 20150924
  Transmission Date: 20151125
  Serious: Yes (Other)
  Sender: FDA-Public Use
  Company Number: AR-SUN PHARMACEUTICAL INDUSTRIES LTD-2015R1-103553

PATIENT
  Age: 50 Year
  Sex: Female

DRUGS (5)
  1. AMANTADINE [Suspect]
     Active Substance: AMANTADINE
     Indication: PRODUCT USED FOR UNKNOWN INDICATION
     Dosage: 300 MG, DAILY
     Route: 065
  2. LEVODOPA/BENZERAZIDE [Suspect]
     Active Substance: BENSERAZIDE\LEVODOPA
     Indication: PARKINSON^S DISEASE
     Dosage: UP TO 600 MG, DAILY
     Route: 065
  3. PIRIBEDIL [Suspect]
     Active Substance: PIRIBEDIL
     Indication: PRODUCT USED FOR UNKNOWN INDICATION
     Dosage: 100 MG, DAILY
     Route: 065
  4. PIRIBEDIL [Suspect]
     Active Substance: PIRIBEDIL
     Indication: PRODUCT USED FOR UNKNOWN INDICATION
     Dosage: 200 MG, DAILY
     Route: 065
  5. PRAMIPEXOLE. [Suspect]
     Active Substance: PRAMIPEXOLE
     Indication: PARKINSON^S DISEASE
     Dosage: 4 MG, DAILY
     Route: 065

REACTIONS (6)
  - Eating disorder [Recovering/Resolving]
  - Pathological gambling [Recovering/Resolving]
  - Binge eating [None]
  - Drug ineffective [Unknown]
  - Compulsive shopping [Recovering/Resolving]
  - Hypersexuality [Recovering/Resolving]
